FAERS Safety Report 4547102-7 (Version None)
Quarter: 2005Q1

REPORT INFORMATION
  Report Type: 
  Country: None (occurrence: None)
  Receive Date: 20050105
  Receipt Date: 20041230
  Transmission Date: 20050727
  Serious: Yes (Hospitalization)
  Sender: FDA-Public Use
  Company Number: 2004UW26314

PATIENT
  Age: 36 Year
  Sex: Male

DRUGS (2)
  1. SEROQUEL [Suspect]
     Dosage: STARTER PACK
  2. COLD MEDICATION [Suspect]
     Indication: NASOPHARYNGITIS

REACTIONS (6)
  - COMA [None]
  - HALLUCINATION [None]
  - NASOPHARYNGITIS [None]
  - OVERDOSE [None]
  - SELF-MEDICATION [None]
  - TREATMENT NONCOMPLIANCE [None]
